FAERS Safety Report 21670052 (Version 1)
Quarter: 2022Q4

REPORT INFORMATION
  Report Type: Spontaneous
  Country: US (occurrence: None)
  Receive Date: 20221201
  Receipt Date: 20221201
  Transmission Date: 20230113
  Serious: Yes (Hospitalization)
  Sender: FDA-Public Use
  Company Number: None

PATIENT
  Age: 81 Year
  Sex: Female

DRUGS (1)
  1. REVATIO [Suspect]
     Active Substance: SILDENAFIL CITRATE
     Indication: Pulmonary arterial hypertension
     Dosage: 20MG THREE TIMES A DAY ORAL?
     Route: 048
     Dates: start: 202209

REACTIONS (2)
  - Oxygen saturation decreased [None]
  - Dizziness [None]

NARRATIVE: CASE EVENT DATE: 20221014
